FAERS Safety Report 7402567-8 (Version None)
Quarter: 2011Q2

REPORT INFORMATION
  Report Type: 
  Country: None (occurrence: None)
  Receive Date: 20110408
  Receipt Date: 20110315
  Transmission Date: 20111010
  Serious: No
  Sender: FDA-Public Use
  Company Number: US-B.I. PHARMACEUTICALS,INC./RIDGEFIELD-2011-BP-08168BP

PATIENT
  Age: 58 Year
  Sex: Female

DRUGS (5)
  1. PRADAXA [Suspect]
     Indication: SUPERIOR VENA CAVA SYNDROME
     Dosage: 150 MG
     Route: 048
     Dates: start: 20110312
  2. NIASPAN [Concomitant]
     Indication: BLOOD CHOLESTEROL
  3. SIMVASTATIN [Concomitant]
     Indication: BLOOD CHOLESTEROL
  4. DIOVAN [Concomitant]
     Indication: HYPERTENSION
  5. ASPIRIN [Concomitant]
     Indication: ADVERSE REACTION
     Dosage: 325 MG

REACTIONS (2)
  - NAUSEA [None]
  - PAIN [None]
